FAERS Safety Report 18389888 (Version 1)
Quarter: 2020Q4

REPORT INFORMATION
  Report Type: Spontaneous
  Country: US (occurrence: US)
  Receive Date: 20201015
  Receipt Date: 20201015
  Transmission Date: 20210114
  Serious: No
  Sender: FDA-Public Use
  Company Number: US-OPTINOSE US, INC-2020OPT000669

PATIENT
  Sex: Male

DRUGS (1)
  1. XHANCE [Suspect]
     Active Substance: FLUTICASONE PROPIONATE
     Indication: CHRONIC RHINOSINUSITIS WITH NASAL POLYPS
     Route: 045
     Dates: start: 202007

REACTIONS (1)
  - Nasal oedema [Recovered/Resolved]

NARRATIVE: CASE EVENT DATE: 2020
